FAERS Safety Report 6257228-8 (Version None)
Quarter: 2009Q2

REPORT INFORMATION
  Report Type: 
  Country: None (occurrence: None)
  Receive Date: 20090630
  Receipt Date: 20090630
  Transmission Date: 20091009
  Serious: No
  Sender: FDA-Public Use
  Company Number: None

PATIENT
  Age: 45 Year
  Sex: Female
  Weight: 105.2345 kg

DRUGS (1)
  1. SAVELLA [Suspect]
     Indication: FIBROMYALGIA
     Dosage: TRIAL PACK AS DIRECTED PO
     Route: 048
     Dates: start: 20090623, end: 20090629

REACTIONS (11)
  - ABDOMINAL PAIN UPPER [None]
  - BLOOD BLISTER [None]
  - CHEST PAIN [None]
  - CONSTIPATION [None]
  - DISORIENTATION [None]
  - DYSGEUSIA [None]
  - DYSPEPSIA [None]
  - MIGRAINE [None]
  - PALPITATIONS [None]
  - RASH [None]
  - SOMNOLENCE [None]
